FAERS Safety Report 6512128-0 (Version None)
Quarter: 2009Q4

REPORT INFORMATION
  Report Type: 
  Country: None (occurrence: None)
  Receive Date: 20091222
  Receipt Date: 20090605
  Transmission Date: 20100525
  Serious: No
  Sender: FDA-Public Use
  Company Number: US-ASTRAZENECA-2009UW14614

PATIENT
  Age: 52 Year
  Sex: Male

DRUGS (3)
  1. CRESTOR [Suspect]
     Route: 048
  2. CIALIS [Concomitant]
  3. TRICOR [Concomitant]

REACTIONS (1)
  - PAIN IN EXTREMITY [None]
